FAERS Safety Report 14394636 (Version 2)
Quarter: 2018Q1

REPORT INFORMATION
  Report Type: Spontaneous
  Country: NL (occurrence: NL)
  Receive Date: 20180116
  Receipt Date: 20180125
  Transmission Date: 20180509
  Serious: Yes (Hospitalization)
  Sender: FDA-Public Use
  Company Number: NL-PFIZER INC-2018012735

PATIENT
  Age: 51 Year
  Sex: Female
  Weight: 60 kg

DRUGS (5)
  1. SALAZOPYRINE [Suspect]
     Active Substance: SULFASALAZINE
     Indication: ARTHRITIS
     Dosage: 2 X 2 TABLETTEN
     Route: 048
     Dates: start: 20171024, end: 20171126
  2. REMSIMA [Concomitant]
     Active Substance: INFLIXIMAB
     Dosage: 1 DF, CYCLIC (EVERY 8 WEEKS)
  3. VITAMINE D [Concomitant]
     Dosage: UNK
     Route: 048
  4. VITAMIN B [Concomitant]
     Active Substance: VITAMIN B
     Dosage: UNK
  5. ORAL CONTRACEPTIVE NOS [Concomitant]
     Active Substance: UNSPECIFIED INGREDIENT
     Dosage: UNK
     Route: 048

REACTIONS (7)
  - Pyrexia [Recovering/Resolving]
  - Stevens-Johnson syndrome [Recovering/Resolving]
  - Swelling face [Recovering/Resolving]
  - Headache [Recovering/Resolving]
  - Vulvovaginal pruritus [Recovering/Resolving]
  - Rash generalised [Recovering/Resolving]
  - Tinnitus [Recovering/Resolving]

NARRATIVE: CASE EVENT DATE: 20171031
